FAERS Safety Report 26072022 (Version 1)
Quarter: 2025Q4

REPORT INFORMATION
  Report Type: Spontaneous
  Country: EU (occurrence: EU)
  Receive Date: 20251120
  Receipt Date: 20251120
  Transmission Date: 20260117
  Serious: Yes (Hospitalization)
  Sender: MYLAN
  Company Number: None

PATIENT
  Age: 39 Year
  Sex: Female

DRUGS (12)
  1. TRAMADOL [Suspect]
     Active Substance: TRAMADOL
     Indication: Product used for unknown indication
     Dosage: 1600 MILLIGRAM, QD (8 EXTENDED-RELEASE TABLETS OF 200 MG PER DAY (3 TABLETS AT 2 PM AND 5 AT 8 PM))
     Dates: start: 2018
  2. TRAMADOL [Suspect]
     Active Substance: TRAMADOL
     Dosage: 1600 MILLIGRAM, QD (8 EXTENDED-RELEASE TABLETS OF 200 MG PER DAY (3 TABLETS AT 2 PM AND 5 AT 8 PM))
     Route: 048
     Dates: start: 2018
  3. TRAMADOL [Suspect]
     Active Substance: TRAMADOL
     Dosage: 1600 MILLIGRAM, QD (8 EXTENDED-RELEASE TABLETS OF 200 MG PER DAY (3 TABLETS AT 2 PM AND 5 AT 8 PM))
     Route: 048
     Dates: start: 2018
  4. TRAMADOL [Suspect]
     Active Substance: TRAMADOL
     Dosage: 1600 MILLIGRAM, QD (8 EXTENDED-RELEASE TABLETS OF 200 MG PER DAY (3 TABLETS AT 2 PM AND 5 AT 8 PM))
     Dates: start: 2018
  5. CODEINE [Suspect]
     Active Substance: CODEINE
     Indication: Product used for unknown indication
     Dosage: 300 MILLIGRAM, QD (6 TABLETS OF 50 MILLIGRAM PER DAY)
     Dates: start: 2018
  6. CODEINE [Suspect]
     Active Substance: CODEINE
     Dosage: 300 MILLIGRAM, QD (6 TABLETS OF 50 MILLIGRAM PER DAY)
     Route: 048
     Dates: start: 2018
  7. CODEINE [Suspect]
     Active Substance: CODEINE
     Dosage: 300 MILLIGRAM, QD (6 TABLETS OF 50 MILLIGRAM PER DAY)
     Route: 048
     Dates: start: 2018
  8. CODEINE [Suspect]
     Active Substance: CODEINE
     Dosage: 300 MILLIGRAM, QD (6 TABLETS OF 50 MILLIGRAM PER DAY)
     Dates: start: 2018
  9. TIANEPTINE [Suspect]
     Active Substance: TIANEPTINE
     Indication: Product used for unknown indication
     Dosage: 15 DOSAGE FORM, QD (UP TO 15 TABLETS IN A SINGLE DOSE AT NIGHT)
     Dates: start: 2006
  10. TIANEPTINE [Suspect]
     Active Substance: TIANEPTINE
     Dosage: 15 DOSAGE FORM, QD (UP TO 15 TABLETS IN A SINGLE DOSE AT NIGHT)
     Route: 048
     Dates: start: 2006
  11. TIANEPTINE [Suspect]
     Active Substance: TIANEPTINE
     Dosage: 15 DOSAGE FORM, QD (UP TO 15 TABLETS IN A SINGLE DOSE AT NIGHT)
     Route: 048
     Dates: start: 2006
  12. TIANEPTINE [Suspect]
     Active Substance: TIANEPTINE
     Dosage: 15 DOSAGE FORM, QD (UP TO 15 TABLETS IN A SINGLE DOSE AT NIGHT)
     Dates: start: 2006

REACTIONS (3)
  - Drug use disorder [Recovering/Resolving]
  - Overdose [Recovering/Resolving]
  - Pharmaceutical nomadism [Recovering/Resolving]

NARRATIVE: CASE EVENT DATE: 20180101
